FAERS Safety Report 6372990-1 (Version None)
Quarter: 2009Q3

REPORT INFORMATION
  Report Type: 
  Country: None (occurrence: None)
  Receive Date: 20090924
  Receipt Date: 20081216
  Transmission Date: 20100115
  Serious: No
  Sender: FDA-Public Use
  Company Number: US-ASTRAZENECA-2008UW28124

PATIENT
  Sex: Female

DRUGS (2)
  1. SEROQUEL [Suspect]
     Indication: BIPOLAR DISORDER
     Dosage: HAD BEEN TAKING 3 OR 4 YEARS THEN DECREASED TO 200 MG ^A COUPLE OF DAYS^ PRIOR TO REPORT
     Route: 048
  2. SEROQUEL [Suspect]
     Indication: INSOMNIA
     Dosage: HAD BEEN TAKING 3 OR 4 YEARS THEN DECREASED TO 200 MG ^A COUPLE OF DAYS^ PRIOR TO REPORT
     Route: 048

REACTIONS (10)
  - ASTHENIA [None]
  - BLOOD TRIGLYCERIDES INCREASED [None]
  - DIZZINESS [None]
  - DRY MOUTH [None]
  - FATIGUE [None]
  - HUNGER [None]
  - MICTURITION URGENCY [None]
  - NECK PAIN [None]
  - THIRST [None]
  - TREMOR [None]
